FAERS Safety Report 18129670 (Version 1)
Quarter: 2020Q3

REPORT INFORMATION
  Report Type: Spontaneous
  Country: US (occurrence: US)
  Receive Date: 20200807
  Receipt Date: 20200807
  Transmission Date: 20201103
  Serious: Yes (Other)
  Sender: FDA-Public Use
  Company Number: None

PATIENT
  Age: 50 Year
  Sex: Female

DRUGS (7)
  1. FLUOXETIE [Concomitant]
  2. ANASTROXOLE [Concomitant]
  3. COSENTYX [Suspect]
     Active Substance: SECUKINUMAB
     Indication: PSORIASIS
     Dosage: ?OTHER DOSE:300MG/2M  Q4WKS SUB Q?
     Route: 058
     Dates: start: 20190726
  4. CEPHALEXIN. [Concomitant]
     Active Substance: CEPHALEXIN
  5. CLOBETASOL [Concomitant]
     Active Substance: CLOBETASOL
  6. MULTI?DAY [Concomitant]
  7. METHOCARBAM [Concomitant]
     Active Substance: METHOCARBAMOL

REACTIONS (1)
  - Breast cancer [None]

NARRATIVE: CASE EVENT DATE: 202001
